FAERS Safety Report 6671783-5 (Version None)
Quarter: 2010Q2

REPORT INFORMATION
  Report Type: 
  Country: None (occurrence: None)
  Receive Date: 20100406
  Receipt Date: 20100406
  Transmission Date: 20101027
  Serious: Yes (Life-Threatening, Hospitalization)
  Sender: FDA-Public Use
  Company Number: None

PATIENT
  Sex: Female
  Weight: 86.1834 kg

DRUGS (2)
  1. EFFEXOR [Suspect]
     Indication: DEPRESSION
     Dosage: TWICE A DAY
     Dates: start: 20020220, end: 20071207
  2. ADDERALL XR 30 [Suspect]
     Indication: ATTENTION DEFICIT/HYPERACTIVITY DISORDER
     Dosage: TWICE A DAY
     Dates: start: 20080928, end: 20091210

REACTIONS (9)
  - ABNORMAL BEHAVIOUR [None]
  - BIPOLAR DISORDER [None]
  - DIVORCED [None]
  - FAMILY STRESS [None]
  - FEELING ABNORMAL [None]
  - HALLUCINATION, AUDITORY [None]
  - PRODUCT QUALITY ISSUE [None]
  - PSYCHOTIC DISORDER [None]
  - SUICIDE ATTEMPT [None]
